FAERS Safety Report 5093756-9 (Version None)
Quarter: 2006Q3

REPORT INFORMATION
  Report Type: 
  Country: None (occurrence: None)
  Receive Date: 20060831
  Receipt Date: 20060821
  Transmission Date: 20061208
  Serious: Yes (Hospitalization)
  Sender: FDA-Public Use
  Company Number: US-JNJFOC-20060800535

PATIENT
  Sex: Female

DRUGS (4)
  1. RISPERDAL [Suspect]
     Indication: BIPOLAR DISORDER
  2. LEXAPRO [Suspect]
     Route: 048
  3. LEXAPRO [Suspect]
     Indication: BIPOLAR DISORDER
     Route: 048
  4. DEPAKOTE ER [Suspect]
     Indication: BIPOLAR DISORDER

REACTIONS (5)
  - BENIGN BREAST NEOPLASM [None]
  - BREAST CYST [None]
  - BREAST DISCHARGE [None]
  - INTENTIONAL SELF-INJURY [None]
  - SUICIDAL IDEATION [None]
